FAERS Safety Report 8949738 (Version 2)
Quarter: 2015Q1

REPORT INFORMATION
  Report Type: Report from Study
  Country: FR (occurrence: FR)
  Receive Date: 20121206
  Receipt Date: 20150129
  Transmission Date: 20150721
  Serious: Yes (Death, Hospitalization)
  Sender: FDA-Public Use
  Company Number: FR-ROCHE-1163432

PATIENT
  Age: 80 Year
  Sex: Male

DRUGS (8)
  1. ADALIMUMAB [Concomitant]
     Active Substance: ADALIMUMAB
  2. ARAVA [Concomitant]
     Active Substance: LEFLUNOMIDE
  3. RITUXIMAB [Suspect]
     Active Substance: RITUXIMAB
     Indication: RHEUMATOID ARTHRITIS
     Route: 042
     Dates: start: 20060903
  4. RITUXIMAB [Suspect]
     Active Substance: RITUXIMAB
     Route: 042
     Dates: start: 20080818
  5. RITUXIMAB [Suspect]
     Active Substance: RITUXIMAB
     Route: 042
     Dates: start: 20060918
  6. METHOTREXATE [Concomitant]
     Active Substance: METHOTREXATE
  7. CORTANCYL [Concomitant]
     Active Substance: PREDNISONE
     Route: 065
  8. CORTANCYL [Concomitant]
     Active Substance: PREDNISONE
     Route: 065

REACTIONS (2)
  - Septic shock [Fatal]
  - Lung disorder [Fatal]

NARRATIVE: CASE EVENT DATE: 20090523
